FAERS Safety Report 11444829 (Version 3)
Quarter: 2016Q2

REPORT INFORMATION
  Report Type: Spontaneous
  Country: US (occurrence: US)
  Receive Date: 20150902
  Receipt Date: 20160421
  Transmission Date: 20160815
  Serious: Yes (Life-Threatening, Hospitalization)
  Sender: FDA-Public Use
  Company Number: US-BAYER-2015-413405

PATIENT
  Age: 21 Year
  Sex: Female

DRUGS (5)
  1. DOXYCYCLINE. [Concomitant]
     Active Substance: DOXYCYCLINE
  2. DEPO-PROVERA [Concomitant]
     Active Substance: MEDROXYPROGESTERONE ACETATE
     Indication: MENORRHAGIA
     Dosage: UNK
     Dates: start: 200404
  3. VICODIN [Concomitant]
     Active Substance: ACETAMINOPHEN\HYDROCODONE BITARTRATE
  4. VITAMINS NOS [Concomitant]
     Active Substance: VITAMINS
  5. MIRENA [Suspect]
     Active Substance: LEVONORGESTREL
     Indication: CONTRACEPTION
     Dosage: 20 MCG/24HR, CONT
     Route: 015
     Dates: start: 20120530, end: 20130904

REACTIONS (18)
  - General physical health deterioration [None]
  - Depression [None]
  - Abdominal discomfort [None]
  - Activities of daily living impaired [None]
  - Nausea [None]
  - Uterine scar [None]
  - Pelvic pain [None]
  - Abdominal pain lower [None]
  - Anxiety [None]
  - Emotional distress [None]
  - Medical device pain [None]
  - Device difficult to use [None]
  - Anhedonia [None]
  - Device issue [None]
  - Pain [None]
  - Abdominal pain [None]
  - Uterine perforation [None]
  - Injury [None]

NARRATIVE: CASE EVENT DATE: 201205
